FAERS Safety Report 8068958-X (Version None)
Quarter: 2012Q1

REPORT INFORMATION
  Report Type: 
  Country: None (occurrence: None)
  Receive Date: 20120118
  Receipt Date: 20120104
  Transmission Date: 20120608
  Serious: Yes (Hospitalization, Other)
  Sender: FDA-Public Use
  Company Number: 216384

PATIENT
  Age: 89 Year
  Sex: Female
  Weight: 64 kg

DRUGS (8)
  1. ACETAMINOPHEN [Concomitant]
  2. MIRTAZAPINE [Concomitant]
  3. INNOHEP [Suspect]
     Indication: PRODUCT USED FOR UNKNOWN INDICATION
     Dosage: 5100 IU (5100 IU,1 IN 1 D),SUBCUTANEOUS
     Route: 058
  4. FERROUS FUMARATE [Concomitant]
  5. ALENDRONATE (ALENDRONATE SODIUM) (TABLET) [Concomitant]
  6. ASPIRIN [Concomitant]
  7. LEVOTHYROXINE SODIUM [Concomitant]
  8. ESOMEPRAZOLE MAGNESIUM [Concomitant]

REACTIONS (2)
  - DEEP VEIN THROMBOSIS [None]
  - THROMBOCYTOPENIA [None]
